FAERS Safety Report 8801759 (Version 1)
Quarter: 2012Q4

REPORT INFORMATION
  Report Type: 
  Country: IT (occurrence: IT)
  Receive Date: 20120921
  Receipt Date: 20120921
  Transmission Date: 20130627
  Serious: Yes (Hospitalization)
  Sender: FDA-Public Use
  Company Number: IT-ROCHE-1133792

PATIENT

DRUGS (3)
  1. AVASTIN [Suspect]
     Indication: COLON CANCER
     Route: 042
     Dates: start: 20111103, end: 20111216
  2. CAPECITABINE [Concomitant]
     Route: 048
     Dates: start: 20111103, end: 20111216
  3. OXALIPLATIN [Concomitant]
     Route: 042
     Dates: start: 20111103, end: 20111216

REACTIONS (1)
  - Respiratory failure [Recovered/Resolved with Sequelae]
